FAERS Safety Report 6264190-0 (Version None)
Quarter: 2009Q3

REPORT INFORMATION
  Report Type: 
  Country: None (occurrence: None)
  Receive Date: 20090706
  Receipt Date: 20090417
  Transmission Date: 20100115
  Serious: Yes (Hospitalization)
  Sender: FDA-Public Use
  Company Number: 628641

PATIENT
  Age: 49 Year
  Sex: Male

DRUGS (4)
  1. MYCOPHENOLATE MOFETIL [Suspect]
     Indication: LUNG TRANSPLANT
     Dosage: 500 MG  2 PER 1 DAY
  2. PROGRAF [Suspect]
     Indication: LUNG TRANSPLANT
     Dosage: 2.5 MG  2 PER 1 DAY
  3. ITRACONAZOLE [Suspect]
     Indication: PHAEHYPHOMYCOSIS
     Dosage: 200 MG  2 PER 1 DAY
  4. PREDNISONE TAB [Suspect]
     Indication: LUNG TRANSPLANT
     Dosage: 10 MG  1 PER 1 DAY

REACTIONS (1)
  - PHAEHYPHOMYCOSIS [None]
